FAERS Safety Report 8023478-3 (Version None)
Quarter: 2012Q1

REPORT INFORMATION
  Report Type: 
  Country: None (occurrence: None)
  Receive Date: 20120105
  Receipt Date: 20111229
  Transmission Date: 20120608
  Serious: No
  Sender: FDA-Public Use
  Company Number: US-BIOGENIDEC-2011BI009040

PATIENT
  Sex: Female

DRUGS (5)
  1. MEDICATIONS (NOS) [Concomitant]
     Indication: MUSCULOSKELETAL STIFFNESS
  2. MEDICATIONS (NOS) [Concomitant]
     Indication: DEPRESSION
  3. MEDICATIONS (NOS) [Concomitant]
     Indication: THYROID DISORDER
  4. TYSABRI [Suspect]
     Indication: MULTIPLE SCLEROSIS
     Route: 042
     Dates: start: 20080623, end: 20110311
  5. MEDICATIONS (NOS) [Concomitant]
     Indication: ANXIETY

REACTIONS (5)
  - GAIT DISTURBANCE [None]
  - MULTIPLE SCLEROSIS [None]
  - HEADACHE [None]
  - DRUG INEFFECTIVE [None]
  - COGNITIVE DISORDER [None]
